FAERS Safety Report 8045918-6 (Version None)
Quarter: 2012Q1

REPORT INFORMATION
  Report Type: 
  Country: None (occurrence: None)
  Receive Date: 20120113
  Receipt Date: 20111201
  Transmission Date: 20120608
  Serious: Yes (Hospitalization)
  Sender: FDA-Public Use
  Company Number: JP-GLAXOSMITHKLINE-B0767447A

PATIENT
  Sex: Female

DRUGS (6)
  1. ANAFRANIL [Concomitant]
     Dosage: 50MG PER DAY
     Route: 065
  2. PRIMPERAN TAB [Concomitant]
     Dosage: 20MG PER DAY
     Route: 065
  3. LAMICTAL [Suspect]
     Indication: BIPOLAR DISORDER
     Dosage: 25MG PER DAY
     Route: 048
     Dates: start: 20111028, end: 20111109
  4. PURSENNID [Concomitant]
     Dosage: 24MG PER DAY
     Route: 048
  5. PAXIL [Concomitant]
     Dosage: 80MG PER DAY
     Route: 048
  6. UNKNOWN DRUG [Concomitant]
     Dosage: 20MG PER DAY
     Route: 048

REACTIONS (11)
  - HEPATIC FUNCTION ABNORMAL [None]
  - NAUSEA [None]
  - CHILLS [None]
  - PLATELET COUNT DECREASED [None]
  - RASH [None]
  - PYREXIA [None]
  - ASPARTATE AMINOTRANSFERASE INCREASED [None]
  - WHITE BLOOD CELL COUNT DECREASED [None]
  - PANCYTOPENIA [None]
  - DRUG ERUPTION [None]
  - LYMPHOCYTE MORPHOLOGY ABNORMAL [None]
